FAERS Safety Report 8827412 (Version 1)
Quarter: 2012Q4

REPORT INFORMATION
  Report Type: 
  Country: GB (occurrence: GB)
  Receive Date: 20121008
  Receipt Date: 20121008
  Transmission Date: 20130627
  Serious: Yes (Hospitalization, Other)
  Sender: FDA-Public Use
  Company Number: GB-JNJFOC-20121000174

PATIENT
  Sex: Female

DRUGS (1)
  1. DUROGESIC DTRANS [Suspect]
     Indication: PAIN
     Route: 062

REACTIONS (4)
  - Overdose [Unknown]
  - Breakthrough pain [Unknown]
  - Inappropriate schedule of drug administration [Unknown]
  - Drug ineffective [Unknown]
